FAERS Safety Report 12438393 (Version 2)
Quarter: 2016Q3

REPORT INFORMATION
  Report Type: Report from Study
  Country: US (occurrence: US)
  Receive Date: 20160606
  Receipt Date: 20160915
  Transmission Date: 20161109
  Serious: Yes (Other)
  Sender: FDA-Public Use
  Company Number: US-TEVA-664171USA

PATIENT
  Age: 49 Year
  Sex: Female

DRUGS (3)
  1. HALOPERIDOL DECANOATE. [Concomitant]
     Active Substance: HALOPERIDOL DECANOATE
     Dosage: 0.75 ML
     Route: 065
  2. CLOZAPINE. [Suspect]
     Active Substance: CLOZAPINE
     Dosage: 50 MILLIGRAM DAILY;
     Route: 048
  3. CLOZAPINE. [Suspect]
     Active Substance: CLOZAPINE
     Dosage: 200 MILLIGRAM DAILY;
     Route: 048

REACTIONS (1)
  - Granulocytopenia [Recovered/Resolved]

NARRATIVE: CASE EVENT DATE: 20160428
